FAERS Safety Report 19152043 (Version 1)
Quarter: 2021Q2

REPORT INFORMATION
  Report Type: Report from Study
  Country: MX (occurrence: MX)
  Receive Date: 20210419
  Receipt Date: 20210419
  Transmission Date: 20210717
  Serious: Yes (Death)
  Sender: FDA-Public Use
  Company Number: NVSC2021MX079413

PATIENT
  Age: 50 Year
  Sex: Male
  Weight: 125 kg

DRUGS (2)
  1. MIFLONIDE [Suspect]
     Active Substance: BUDESONIDE
     Indication: DYSPNOEA
     Dosage: 1 DF, BID
     Route: 055
     Dates: start: 202011
  2. MIFLONIDE [Suspect]
     Active Substance: BUDESONIDE
     Dosage: 2 DF, BID ( (2 OF 400 UG)
     Route: 055
     Dates: start: 202103, end: 20210412

REACTIONS (3)
  - Death [Fatal]
  - Product use in unapproved indication [Unknown]
  - Feeling abnormal [Unknown]

NARRATIVE: CASE EVENT DATE: 202011
